FAERS Safety Report 13843771 (Version 1)
Quarter: 2017Q3

REPORT INFORMATION
  Report Type: Spontaneous
  Country: US (occurrence: US)
  Receive Date: 20170808
  Receipt Date: 20170808
  Transmission Date: 20171127
  Serious: No
  Sender: FDA-Public Use
  Company Number: None

PATIENT

DRUGS (2)
  1. SODIUM CHLORIDE 0.9% SOLUTION [Suspect]
     Active Substance: SODIUM CHLORIDE
  2. SODIUM CHLORIDE 0.9% SOLUTION [Suspect]
     Active Substance: SODIUM CHLORIDE
     Dosage: SIZE: 250 ML

REACTIONS (2)
  - Product label issue [None]
  - Circumstance or information capable of leading to device use error [None]
